FAERS Safety Report 7097538-8 (Version None)
Quarter: 2010Q4

REPORT INFORMATION
  Report Type: 
  Country: None (occurrence: None)
  Receive Date: 20101111
  Receipt Date: 20101104
  Transmission Date: 20110411
  Serious: Yes (Hospitalization)
  Sender: FDA-Public Use
  Company Number: US-GILEAD-2010-0026329

PATIENT
  Sex: Male
  Weight: 91.254 kg

DRUGS (9)
  1. AMBRISENTAN [Suspect]
     Indication: IDIOPATHIC PULMONARY FIBROSIS
     Route: 048
     Dates: start: 20091222, end: 20100104
  2. LOVASTATIN [Concomitant]
     Indication: HYPERCHOLESTEROLAEMIA
  3. WARFARIN [Concomitant]
     Indication: PROPHYLAXIS
  4. METOPROLOL [Concomitant]
     Indication: HYPERTENSION
  5. ASPIRIN [Concomitant]
     Indication: PROPHYLAXIS
  6. LANTUS [Concomitant]
     Indication: DIABETES MELLITUS
  7. VICODIN [Concomitant]
     Indication: BACK PAIN
  8. ACETAMINOPHEN [Concomitant]
     Indication: PAIN
  9. VITAMIN D [Concomitant]
     Indication: SUPPLEMENTATION THERAPY

REACTIONS (1)
  - ANGINA UNSTABLE [None]
